FAERS Safety Report 4884390-1 (Version None)
Quarter: 2006Q1

REPORT INFORMATION
  Report Type: 
  Country: None (occurrence: None)
  Receive Date: 20060117
  Receipt Date: 20060117
  Transmission Date: 20060701
  Serious: Yes (Hospitalization)
  Sender: FDA-Public Use
  Company Number: None

PATIENT
  Age: 65 Year
  Sex: Male

DRUGS (3)
  1. TEQUIN [Suspect]
     Indication: INFECTION
     Dosage: 400 MG/  20 VIAL D5W   DAILY IVPB
     Dates: start: 20041112, end: 20041113
  2. PROTONIX [Concomitant]
  3. PRECEDEX [Concomitant]

REACTIONS (1)
  - HYPOGLYCAEMIA [None]
